FAERS Safety Report 6166442-1 (Version None)
Quarter: 2009Q2

REPORT INFORMATION
  Report Type: 
  Country: None (occurrence: None)
  Receive Date: 20090422
  Receipt Date: 20090422
  Transmission Date: 20091009
  Serious: Yes (Other)
  Sender: FDA-Public Use
  Company Number: None

PATIENT
  Age: 74 Year
  Sex: Female
  Weight: 111.5849 kg

DRUGS (1)
  1. REMICADE [Suspect]
     Indication: RHEUMATOID ARTHRITIS
     Dosage: 335 MG EVERY 8 WKS - BUT STARTS LOADING DOSE -}
     Dates: start: 20090414

REACTIONS (5)
  - BACK PAIN [None]
  - DYSPNOEA [None]
  - FEELING COLD [None]
  - MUSCLE SPASMS [None]
  - TREMOR [None]
